FAERS Safety Report 7346321-4 (Version None)
Quarter: 2011Q1

REPORT INFORMATION
  Report Type: 
  Country: None (occurrence: None)
  Receive Date: 20110228
  Receipt Date: 20110210
  Transmission Date: 20110831
  Serious: Yes (Other)
  Sender: FDA-Public Use
  Company Number: 2010JP006115

PATIENT
  Age: 46 Year
  Sex: Female
  Weight: 67.4 kg

DRUGS (12)
  1. SOL MEDROL (METHYLPREDNISOLONE, SUCCINATE SODIUM) [Concomitant]
  2. CELLCEPT [Concomitant]
  3. WARFARIN SODIUM [Concomitant]
  4. PERSANTIN [Concomitant]
  5. FUTHAN (NAFAMOSTAT MESILATE) [Concomitant]
  6. PROGRAF [Suspect]
     Indication: IMMUNOSUPPRESSANT DRUG THERAPY
     Dosage: 3 MG, BID, ORAL
     Route: 048
     Dates: start: 20070328, end: 20080117
  7. PROGRAF [Suspect]
     Indication: IMMUNOSUPPRESSANT DRUG THERAPY
     Dosage: 3 MG, BID, ORAL
     Route: 048
     Dates: start: 20080118, end: 20080122
  8. FAMOTIDINE [Concomitant]
  9. RITUXAN [Concomitant]
  10. PREDNISOLONE [Concomitant]
  11. PGE 1 (ALPROSTADIL) [Concomitant]
  12. TAMIFLU [Concomitant]

REACTIONS (9)
  - SHOCK [None]
  - BLOOD CREATININE INCREASED [None]
  - INFLUENZA [None]
  - PNEUMONIA BACTERIAL [None]
  - DEPRESSED LEVEL OF CONSCIOUSNESS [None]
  - BLOOD UREA INCREASED [None]
  - SINUS TACHYCARDIA [None]
  - CIRCULATORY COLLAPSE [None]
  - WHITE BLOOD CELL COUNT DECREASED [None]
